FAERS Safety Report 11875342 (Version 2)
Quarter: 2016Q1

REPORT INFORMATION
  Report Type: Spontaneous
  Country: US (occurrence: US)
  Receive Date: 20151229
  Receipt Date: 20160125
  Transmission Date: 20160526
  Serious: No
  Sender: FDA-Public Use
  Company Number: US-PFIZER INC-2015424352

PATIENT
  Age: 69 Year
  Sex: Female
  Weight: 79.37 kg

DRUGS (6)
  1. CHANTIX [Suspect]
     Active Substance: VARENICLINE TARTRATE
     Dosage: 0.5 MG, 2X/DAY
     Route: 048
     Dates: start: 2015, end: 2015
  2. CYMBALTA [Concomitant]
     Active Substance: DULOXETINE HYDROCHLORIDE
     Indication: DEPRESSION
     Dosage: 80 MG, DAILY
     Route: 048
  3. XANAX [Concomitant]
     Active Substance: ALPRAZOLAM
     Indication: PANIC ATTACK
     Dosage: 0.25 MG, 3X/DAY
     Route: 048
  4. CHANTIX [Suspect]
     Active Substance: VARENICLINE TARTRATE
     Indication: SMOKING CESSATION THERAPY
     Dosage: 0.5 MG, 1X/DAY
     Route: 048
     Dates: start: 201511, end: 2015
  5. XANAX [Concomitant]
     Active Substance: ALPRAZOLAM
     Indication: SOCIAL ANXIETY DISORDER
  6. CHANTIX [Suspect]
     Active Substance: VARENICLINE TARTRATE
     Dosage: HIGHER DOSE
     Route: 048
     Dates: start: 2015

REACTIONS (17)
  - Headache [Not Recovered/Not Resolved]
  - Fatigue [Unknown]
  - Anger [Recovering/Resolving]
  - Insomnia [Unknown]
  - Pain [Recovering/Resolving]
  - Thirst [Not Recovered/Not Resolved]
  - Anxiety [Unknown]
  - Disease recurrence [Unknown]
  - Decreased appetite [Unknown]
  - Malaise [Not Recovered/Not Resolved]
  - Influenza like illness [Unknown]
  - Arthritis [Unknown]
  - Fibromyalgia [Unknown]
  - Polydipsia [Unknown]
  - Nausea [Not Recovered/Not Resolved]
  - Hypophagia [Not Recovered/Not Resolved]
  - Abdominal discomfort [Unknown]

NARRATIVE: CASE EVENT DATE: 2015
